FAERS Safety Report 7318011-5 (Version None)
Quarter: 2011Q1

REPORT INFORMATION
  Report Type: 
  Country: None (occurrence: None)
  Receive Date: 20110227
  Receipt Date: 20110221
  Transmission Date: 20110831
  Serious: Yes (Death, Other)
  Sender: FDA-Public Use
  Company Number: SN-B.I. PHARMACEUTICALS,INC./RIDGEFIELD-2011-DE-01248GD

PATIENT

DRUGS (1)
  1. NEVIRAPINE [Suspect]
     Indication: HIV INFECTION

REACTIONS (2)
  - SEPTIC SHOCK [None]
  - STEVENS-JOHNSON SYNDROME [None]
